FAERS Safety Report 17806858 (Version 1)
Quarter: 2020Q2

REPORT INFORMATION
  Report Type: Spontaneous
  Country: US (occurrence: US)
  Receive Date: 20200519
  Receipt Date: 20200519
  Transmission Date: 20200714
  Serious: Yes (Life-Threatening, Hospitalization)
  Sender: FDA-Public Use
  Company Number: None

PATIENT
  Age: 55 Year
  Sex: Male
  Weight: 90 kg

DRUGS (9)
  1. LITHIUM. [Concomitant]
     Active Substance: LITHIUM
     Dates: start: 20200519
  2. TRAMADOL. [Concomitant]
     Active Substance: TRAMADOL
  3. LISINOPRIL. [Concomitant]
     Active Substance: LISINOPRIL
     Dates: end: 20200519
  4. MULTIVITAMIN [Concomitant]
     Active Substance: VITAMINS
     Dates: start: 20200518
  5. FOLIC ACID. [Concomitant]
     Active Substance: FOLIC ACID
     Dates: start: 20200518
  6. THIAMINE. [Concomitant]
     Active Substance: THIAMINE
     Dates: start: 20200518
  7. LISINOPRIL. [Suspect]
     Active Substance: LISINOPRIL
     Route: 048
  8. METOPROLOL ER [Concomitant]
     Active Substance: METOPROLOL SUCCINATE
  9. BACLOFEN. [Concomitant]
     Active Substance: BACLOFEN

REACTIONS (5)
  - Pharyngeal swelling [None]
  - Oropharyngeal swelling [None]
  - Hyperhidrosis [None]
  - Dyspnoea [None]
  - Enlarged uvula [None]

NARRATIVE: CASE EVENT DATE: 20200519
